FAERS Safety Report 4820942-2 (Version None)
Quarter: 2005Q4

REPORT INFORMATION
  Report Type: 
  Country: None (occurrence: None)
  Receive Date: 20051104
  Receipt Date: 20050906
  Transmission Date: 20060501
  Serious: Yes (Other)
  Sender: FDA-Public Use
  Company Number: US-ROCHE-417060

PATIENT
  Age: 37 Year
  Sex: Male

DRUGS (2)
  1. ACCUTANE [Suspect]
     Indication: DRUG USE FOR UNKNOWN INDICATION
     Route: 065
     Dates: end: 19970515
  2. ACCUTANE [Suspect]
     Route: 065

REACTIONS (6)
  - ABDOMINAL PAIN [None]
  - CHOLECYSTECTOMY [None]
  - LIVER FUNCTION TEST ABNORMAL [None]
  - NAUSEA [None]
  - PANCREATITIS [None]
  - WEIGHT DECREASED [None]
